FAERS Safety Report 12241177 (Version 1)
Quarter: 2016Q2

REPORT INFORMATION
  Report Type: Spontaneous
  Country: US (occurrence: None)
  Receive Date: 20160405
  Receipt Date: 20160405
  Transmission Date: 20160815
  Serious: No
  Sender: FDA-Public Use
  Company Number: None

PATIENT
  Age: 42 Year
  Sex: Female
  Weight: 71.99 kg

DRUGS (3)
  1. FLUTICASONE [Suspect]
     Active Substance: FLUTICASONE\FLUTICASONE PROPIONATE
     Dosage: 50 UG 1-2 SPEN QD NASAL
     Route: 045
     Dates: start: 20160201, end: 20160331
  2. BUDESONIDE 32 MCG [Suspect]
     Active Substance: BUDESONIDE
  3. FLUNISOLIDE 25 MCG/ACT [Suspect]
     Active Substance: FLUNISOLIDE
     Indication: RHINITIS PERENNIAL
     Dosage: 25 UG 2 SPEN BID NASAL
     Route: 045
     Dates: start: 20160201, end: 20160330

REACTIONS (3)
  - Insomnia [None]
  - Nasal congestion [None]
  - Nasal discomfort [None]

NARRATIVE: CASE EVENT DATE: 20160204
